FAERS Safety Report 6226980-X (Version None)
Quarter: 2009Q2

REPORT INFORMATION
  Report Type: 
  Country: None (occurrence: None)
  Receive Date: 20090612
  Receipt Date: 20090521
  Transmission Date: 20091009
  Serious: No
  Sender: FDA-Public Use
  Company Number: US-ABBOTT-09P-163-0575662-00

PATIENT
  Sex: Female
  Weight: 99.88 kg

DRUGS (6)
  1. HUMIRA [Suspect]
     Indication: RHEUMATOID ARTHRITIS
     Route: 058
     Dates: start: 20071001, end: 20080801
  2. HUMIRA [Suspect]
     Route: 058
     Dates: start: 20090401
  3. METHOTREXATE [Concomitant]
     Indication: RHEUMATOID ARTHRITIS
  4. ALEVE [Concomitant]
     Indication: PAIN
     Route: 048
  5. RITUXAN [Concomitant]
     Indication: RHEUMATOID ARTHRITIS
     Dosage: CLINICAL TRIAL OF EXPERIMENTAL TREATMENT FOR B CELL DEPLETION THERAPY.
  6. RITUXAN [Concomitant]
     Indication: B-LYMPHOCYTE COUNT DECREASED

REACTIONS (1)
  - DRUG INEFFECTIVE [None]
